FAERS Safety Report 4551536-4 (Version None)
Quarter: 2005Q1

REPORT INFORMATION
  Report Type: 
  Country: None (occurrence: None)
  Receive Date: 20050111
  Receipt Date: 20041229
  Transmission Date: 20050727
  Serious: Yes (Other)
  Sender: FDA-Public Use
  Company Number: CAP04000366

PATIENT
  Sex: Female

DRUGS (1)
  1. ETIDRONATE DISODIUM [Suspect]
     Indication: BONE DISORDER
     Dosage: 1 TABLET ONCE DAILY, ORAL
     Route: 048

REACTIONS (3)
  - FEELING ABNORMAL [None]
  - MEMORY IMPAIRMENT [None]
  - NEOPLASM MALIGNANT [None]
